FAERS Safety Report 6609968-6 (Version None)
Quarter: 2010Q1

REPORT INFORMATION
  Report Type: 
  Country: None (occurrence: None)
  Receive Date: 20100302
  Receipt Date: 20100215
  Transmission Date: 20100710
  Serious: Yes (Hospitalization, Other)
  Sender: FDA-Public Use
  Company Number: US-ROCHE-658109

PATIENT
  Sex: Female
  Weight: 66.3 kg

DRUGS (5)
  1. BEVACIZUMAB [Suspect]
     Indication: MALIGNANT MELANOMA
     Dosage: 7.5 MG/KG, Q3W, LAST DOSE PRIOR TO SAE: 17 AUGUST 2009.
     Route: 042
     Dates: start: 20090611, end: 20090817
  2. IPILIMUMAB [Suspect]
     Indication: MALIGNANT MELANOMA
     Dosage: 10 MG/KG, Q3W
     Route: 042
     Dates: start: 20090611, end: 20090817
  3. SYNTHROID [Concomitant]
     Indication: DRUG USE FOR UNKNOWN INDICATION
  4. PREVACID [Concomitant]
     Indication: DRUG USE FOR UNKNOWN INDICATION
  5. PREDNISONE TAB [Concomitant]
     Indication: DRUG USE FOR UNKNOWN INDICATION
     Dosage: 20 MG, QD
     Dates: start: 20090827

REACTIONS (7)
  - ADRENAL INSUFFICIENCY [None]
  - HEADACHE [None]
  - HYPOPHYSITIS [None]
  - HYPOTENSION [None]
  - PYREXIA [None]
  - RASH [None]
  - URINARY TRACT INFECTION [None]
